FAERS Safety Report 11975835 (Version 1)
Quarter: 2016Q1

REPORT INFORMATION
  Report Type: Spontaneous
  Country: US (occurrence: US)
  Receive Date: 20160129
  Receipt Date: 20160129
  Transmission Date: 20160526
  Serious: Yes (Hospitalization)
  Sender: FDA-Public Use
  Company Number: US-BEH-2015056606

PATIENT
  Age: 7 Year
  Sex: Female
  Weight: 32 kg

DRUGS (10)
  1. LIDOCAINE/PRILOCAINE [Concomitant]
  2. ALBUTEROL. [Concomitant]
     Active Substance: ALBUTEROL
  3. HIZENTRA [Suspect]
     Active Substance: HUMAN IMMUNOGLOBULIN G
     Indication: IMMUNODEFICIENCY COMMON VARIABLE
     Route: 058
  4. CIPRO [Concomitant]
     Active Substance: CIPROFLOXACIN HYDROCHLORIDE
  5. AMOXICILLIN. [Concomitant]
     Active Substance: AMOXICILLIN
  6. L-M-X [Concomitant]
  7. EPIPEN JR [Concomitant]
     Active Substance: EPINEPHRINE
  8. HIZENTRA [Suspect]
     Active Substance: HUMAN IMMUNOGLOBULIN G
     Indication: CELL-MEDIATED IMMUNE DEFICIENCY
     Route: 058
  9. ACETAMINOPHEN. [Concomitant]
     Active Substance: ACETAMINOPHEN
  10. DIPHENHYDRAMINE. [Concomitant]
     Active Substance: DIPHENHYDRAMINE

REACTIONS (4)
  - Nasopharyngitis [Unknown]
  - Ill-defined disorder [Unknown]
  - Dyspnoea [Unknown]
  - Pyrexia [Unknown]

NARRATIVE: CASE EVENT DATE: 20151201
